FAERS Safety Report 6579012-8 (Version None)
Quarter: 2010Q1

REPORT INFORMATION
  Report Type: 
  Country: None (occurrence: None)
  Receive Date: 20100212
  Receipt Date: 20100201
  Transmission Date: 20100710
  Serious: Yes (Hospitalization, Other)
  Sender: FDA-Public Use
  Company Number: JP-JNJFOC-20090806812

PATIENT
  Sex: Male
  Weight: 56 kg

DRUGS (3)
  1. REMICADE [Suspect]
     Indication: CROHN'S DISEASE
     Dosage: ONE DOSE ADMINISTERED
     Route: 042
     Dates: start: 20090717
  2. IMURAN [Suspect]
     Indication: CROHN'S DISEASE
     Route: 048
  3. ISCOTIN [Concomitant]
     Indication: LATENT TUBERCULOSIS
     Route: 048

REACTIONS (3)
  - APPENDICITIS PERFORATED [None]
  - PERITONITIS [None]
  - RETROPERITONEAL ABSCESS [None]
